FAERS Safety Report 7655717-2 (Version None)
Quarter: 2011Q3

REPORT INFORMATION
  Report Type: 
  Country: None (occurrence: None)
  Receive Date: 20110804
  Receipt Date: 20110726
  Transmission Date: 20111222
  Serious: Yes (Disabling)
  Sender: FDA-Public Use
  Company Number: SE-NOVOPROD-318897

PATIENT
  Age: 51 Year
  Sex: Female
  Weight: 80 kg

DRUGS (7)
  1. SIMVASTATIN [Concomitant]
     Indication: HYPERLIPIDAEMIA
     Dosage: UNK
     Route: 065
     Dates: start: 20101005
  2. LASIX R [Concomitant]
     Indication: HYPERTONIA
     Dosage: 6 MG, QD
     Route: 048
     Dates: start: 20081223
  3. VICTOZA [Suspect]
     Indication: TYPE 2 DIABETES MELLITUS
     Dosage: UNK
     Route: 065
     Dates: start: 20100201
  4. METFORMIN HCL [Concomitant]
     Indication: TYPE 2 DIABETES MELLITUS
     Dosage: 2 G, QD
     Route: 048
     Dates: start: 20090324
  5. VICTOZA [Suspect]
     Dosage: 1.2 MG, QD
     Route: 065
     Dates: start: 20100324
  6. VICTOZA [Suspect]
     Dosage: 0.6 MG, QD
     Route: 065
     Dates: start: 20100310
  7. ENALAPRIL MALEATE [Concomitant]
     Indication: HYPERTONIA
     Dosage: 10 MG, QD
     Route: 048
     Dates: start: 20101005

REACTIONS (1)
  - PAPILLOEDEMA [None]
